FAERS Safety Report 5856140-3 (Version None)
Quarter: 2008Q3

REPORT INFORMATION
  Report Type: 
  Country: None (occurrence: None)
  Receive Date: 20080825
  Receipt Date: 20080812
  Transmission Date: 20090109
  Serious: Yes (Other)
  Sender: FDA-Public Use
  Company Number: AU-ROCHE-575945

PATIENT
  Age: 42 Year
  Sex: Male
  Weight: 95 kg

DRUGS (3)
  1. PEGASYS [Suspect]
     Indication: HEPATITIS C
     Route: 058
     Dates: start: 20060617
  2. PEGASYS [Suspect]
     Route: 058
     Dates: end: 20061212
  3. RIBAVIRIN [Suspect]
     Indication: HEPATITIS C
     Route: 048
     Dates: start: 20060117, end: 20061219

REACTIONS (1)
  - NON-HODGKIN'S LYMPHOMA [None]
